FAERS Safety Report 16904984 (Version 1)
Quarter: 2019Q4

REPORT INFORMATION
  Report Type: Spontaneous
  Country: GB (occurrence: GB)
  Receive Date: 20191010
  Receipt Date: 20191010
  Transmission Date: 20200122
  Serious: Yes (Other)
  Sender: FDA-Public Use
  Company Number: GB-MYLANLABS-2019M1094934

PATIENT
  Age: 75 Year
  Sex: Female
  Weight: 57.15 kg

DRUGS (2)
  1. LANSOPRAZOLE. [Suspect]
     Active Substance: LANSOPRAZOLE
     Indication: GASTRITIS
     Dosage: 30 MILLIGRAM
     Route: 048
     Dates: start: 20190611, end: 20190611
  2. ESOMEPRAZOLE. [Suspect]
     Active Substance: ESOMEPRAZOLE MAGNESIUM
     Indication: GASTRITIS
     Dosage: 40 MILLIGRAM
     Route: 048
     Dates: start: 20190521, end: 20190529

REACTIONS (4)
  - Headache [Recovering/Resolving]
  - Malaise [Recovering/Resolving]
  - Feeling abnormal [Unknown]
  - Arthralgia [Recovering/Resolving]

NARRATIVE: CASE EVENT DATE: 20190611
